FAERS Safety Report 10063461 (Version 1)
Quarter: 2014Q1

REPORT INFORMATION
  Report Type: Spontaneous
  Country: US (occurrence: None)
  Receive Date: 20140327
  Receipt Date: 20140327
  Transmission Date: 20141002
  Serious: Yes (Other)
  Sender: FDA-Public Use
  Company Number: GR-13-011

PATIENT
  Sex: Male

DRUGS (1)
  1. CANDIDA ALBICANS [Suspect]
     Indication: SKIN PAPILLOMA
     Dosage: 0.1 CC

REACTIONS (1)
  - Musculoskeletal stiffness [None]
